FAERS Safety Report 8541532-4 (Version None)
Quarter: 2012Q3

REPORT INFORMATION
  Report Type: 
  Country: None (occurrence: None)
  Receive Date: 20120726
  Receipt Date: 20120403
  Transmission Date: 20120928
  Serious: No
  Sender: FDA-Public Use
  Company Number: US-MUTUAL PHARMACEUTICAL COMPANY, INC.-CLCY20120054

PATIENT
  Sex: Female
  Weight: 59.02 kg

DRUGS (7)
  1. ASPIRIN [Concomitant]
     Indication: CARDIOVASCULAR EVENT PROPHYLAXIS
     Route: 048
  2. ^WATER PILL^ [Concomitant]
     Indication: HYPERTENSION
     Route: 048
  3. CALCIUM CARBONATE [Concomitant]
     Indication: RENAL IMPAIRMENT
     Route: 048
  4. HECTOROL [Concomitant]
     Indication: RENAL IMPAIRMENT
     Route: 048
  5. HYDREA [Concomitant]
     Indication: RED BLOOD CELL ABNORMALITY
     Route: 048
  6. COLCRYS [Suspect]
     Indication: GOUT
     Route: 048
     Dates: start: 20120331, end: 20120402
  7. PRAVASTATIN [Concomitant]
     Indication: PRODUCT USED FOR UNKNOWN INDICATION
     Route: 048

REACTIONS (4)
  - DIZZINESS [None]
  - DIARRHOEA [None]
  - ABDOMINAL PAIN UPPER [None]
  - LIP SWELLING [None]
